FAERS Safety Report 8580190-X (Version None)
Quarter: 2012Q3

REPORT INFORMATION
  Report Type: 
  Country: None (occurrence: None)
  Receive Date: 20120808
  Receipt Date: 20120807
  Transmission Date: 20120928
  Serious: No
  Sender: FDA-Public Use
  Company Number: US-BAYER-2012-080318

PATIENT
  Age: 35 Year
  Sex: Male

DRUGS (1)
  1. BETASERON [Suspect]
     Indication: MULTIPLE SCLEROSIS
     Dosage: 0.062 MG, QOD
     Route: 058
     Dates: start: 20120719

REACTIONS (4)
  - INFLUENZA LIKE ILLNESS [None]
  - BONE PAIN [None]
  - ARTHRALGIA [None]
  - MUSCLE SPASMS [None]
